FAERS Safety Report 10567180 (Version 2)
Quarter: 2015Q1

REPORT INFORMATION
  Report Type: Spontaneous
  Country: None (occurrence: US)
  Receive Date: 20141105
  Receipt Date: 20150116
  Transmission Date: 20150720
  Serious: No
  Sender: FDA-Public Use
  Company Number: US-TEVA-519749USA

PATIENT
  Age: 2 Year
  Sex: Female

DRUGS (1)
  1. QVAR [Suspect]
     Active Substance: BECLOMETHASONE DIPROPIONATE
     Indication: ASTHMA
     Dosage: 160 MICROGRAM DAILY; 2 PUFFS
     Route: 055
     Dates: start: 201311

REACTIONS (3)
  - Alopecia [Not Recovered/Not Resolved]
  - Product use issue [Unknown]
  - Trichorrhexis [Not Recovered/Not Resolved]

NARRATIVE: CASE EVENT DATE: 201311
